FAERS Safety Report 16659517 (Version 2)
Quarter: 2020Q3

REPORT INFORMATION
  Report Type: Spontaneous
  Country: IL (occurrence: IL)
  Receive Date: 20190802
  Receipt Date: 20200720
  Transmission Date: 20201102
  Serious: Yes (Other)
  Sender: FDA-Public Use
  Company Number: IL-SUN PHARMACEUTICAL INDUSTRIES LTD-2019R1-215668

PATIENT
  Age: 35 Year
  Sex: Female

DRUGS (1)
  1. DEXAMETHASONE. [Suspect]
     Active Substance: DEXAMETHASONE
     Indication: PLASMACYTOMA
     Dosage: 40 MILLIGRAM, DAILY FOR FOUR DAYS EACH WEEK
     Route: 065

REACTIONS (3)
  - Exposure during pregnancy [Unknown]
  - Neoplasm progression [Unknown]
  - Premature delivery [Unknown]
